FAERS Safety Report 7352197-1 (Version None)
Quarter: 2011Q1

REPORT INFORMATION
  Report Type: 
  Country: None (occurrence: None)
  Receive Date: 20110315
  Receipt Date: 20110310
  Transmission Date: 20110831
  Serious: No
  Sender: FDA-Public Use
  Company Number: US-TEVA-270983USA

PATIENT
  Sex: Female

DRUGS (3)
  1. PLAN B ONE-STEP [Suspect]
     Route: 048
     Dates: start: 20110221, end: 20110221
  2. PLAN B ONE-STEP [Suspect]
     Indication: POST COITAL CONTRACEPTION
     Route: 048
     Dates: start: 20110221, end: 20110221
  3. DEPO-PROVERA [Concomitant]
     Indication: CONTRACEPTION

REACTIONS (2)
  - NAUSEA [None]
  - VOMITING [None]
